FAERS Safety Report 4582184-8 (Version None)
Quarter: 2005Q1

REPORT INFORMATION
  Report Type: 
  Country: None (occurrence: None)
  Receive Date: 20050210
  Receipt Date: 20050126
  Transmission Date: 20050727
  Serious: Yes (Death, Hospitalization)
  Sender: FDA-Public Use
  Company Number: 2004AL000787

PATIENT
  Age: 56 Year
  Sex: Male
  Weight: 110.6777 kg

DRUGS (8)
  1. VERAPAMIL HYDROCHLORIDE [Suspect]
     Dosage: PO
     Route: 048
  2. CLONAZEPAN [Suspect]
     Dosage: PO
     Route: 048
  3. CHILDREN'S APAP ELIXIR (ACETAMINOPHEN) [Suspect]
     Dosage: PO
     Route: 048
  4. INFANT'S APAP DROPS (ACETAMINOPHEN) [Suspect]
     Dosage: PO
     Route: 048
  5. ACETAMINOPHEN [Suspect]
  6. LOSARTAN POTASSIUM [Suspect]
     Dosage: PO
     Route: 048
  7. FUROSEMIDE [Suspect]
     Dosage: PO
     Route: 048
  8. INSULIN [Suspect]

REACTIONS (9)
  - CARDIO-RESPIRATORY ARREST [None]
  - CEREBRAL ARTERY OCCLUSION [None]
  - COMA [None]
  - COMPLETED SUICIDE [None]
  - COMPUTERISED TOMOGRAM ABNORMAL [None]
  - DRUG EFFECT DECREASED [None]
  - GENERAL PHYSICAL HEALTH DETERIORATION [None]
  - HEART RATE DECREASED [None]
  - MULTIPLE DRUG OVERDOSE [None]
